FAERS Safety Report 18564135 (Version 1)
Quarter: 2020Q4

REPORT INFORMATION
  Report Type: Spontaneous
  Country: US (occurrence: US)
  Receive Date: 20201130
  Receipt Date: 20201130
  Transmission Date: 20210114
  Serious: Yes (Death)
  Sender: FDA-Public Use
  Company Number: None

PATIENT
  Age: 89 Year
  Sex: Male
  Weight: 66 kg

DRUGS (14)
  1. CARVEDILOL 3.125MG [Concomitant]
     Active Substance: CARVEDILOL
  2. VITAMIN B12 1000MCG [Concomitant]
  3. ISOSORBIDE MONONITRATE 30MG ER [Concomitant]
  4. METFORMIN [Concomitant]
     Active Substance: METFORMIN HYDROCHLORIDE
  5. NITROGLYCERIN 0.4MG [Concomitant]
  6. ASPIRIN 81MG [Concomitant]
     Active Substance: ASPIRIN
  7. ATORVASTATIN 80MG [Concomitant]
     Active Substance: ATORVASTATIN
  8. WARFARIN [Suspect]
     Active Substance: WARFARIN
     Indication: ATRIAL FIBRILLATION
     Route: 048
     Dates: end: 20201104
  9. AMLODIPINE [Concomitant]
     Active Substance: AMLODIPINE BESYLATE
  10. DIGOXIN 125MCG [Concomitant]
  11. POTASSIUM CHLORIDE 10 MEQ [Concomitant]
     Active Substance: POTASSIUM CHLORIDE
  12. NOVOLIN 70/30 [Concomitant]
     Active Substance: INSULIN HUMAN
  13. LISINOPRIL. [Concomitant]
     Active Substance: LISINOPRIL
  14. TORSEMIDE 20MG [Concomitant]
     Active Substance: TORSEMIDE

REACTIONS (6)
  - International normalised ratio increased [None]
  - Unresponsive to stimuli [None]
  - Hospice care [None]
  - Headache [None]
  - Basal ganglia haemorrhage [None]
  - Mental status changes [None]

NARRATIVE: CASE EVENT DATE: 20201104
